FAERS Safety Report 14245722 (Version 2)
Quarter: 2017Q4

REPORT INFORMATION
  Report Type: Report from Study
  Country: JP (occurrence: JP)
  Receive Date: 20171204
  Receipt Date: 20171208
  Transmission Date: 20180321
  Serious: Yes (Other)
  Sender: FDA-Public Use
  Company Number: JP-BEH-2017085604

PATIENT
  Age: 56 Year
  Sex: Male

DRUGS (1)
  1. ALBUMIN HUMAN (NON-COMPANY) [Suspect]
     Active Substance: ALBUMIN HUMAN
     Indication: PRODUCT USED FOR UNKNOWN INDICATION
     Route: 065

REACTIONS (3)
  - Anaphylactic shock [Unknown]
  - Ventricular fibrillation [Unknown]
  - Blood pressure decreased [Unknown]
